FAERS Safety Report 5130635-2 (Version None)
Quarter: 2006Q4

REPORT INFORMATION
  Report Type: 
  Country: None (occurrence: None)
  Receive Date: 20061019
  Receipt Date: 20060920
  Transmission Date: 20070319
  Serious: Yes (Hospitalization)
  Sender: FDA-Public Use
  Company Number: KR-BAYER-200614377GDS

PATIENT
  Age: 34 Year
  Sex: Male
  Weight: 83 kg

DRUGS (43)
  1. AVELOX [Suspect]
     Indication: APPENDICITIS
     Route: 042
     Dates: start: 20060915, end: 20060920
  2. HARTMANN'S SOLUTION [Concomitant]
     Indication: FLUID REPLACEMENT
     Route: 042
     Dates: start: 20060914, end: 20060914
  3. HARTMANN DEX SOLUTION [Concomitant]
     Indication: FLUID REPLACEMENT
     Route: 042
     Dates: start: 20060921, end: 20060921
  4. HARTMANN DEX SOLUTION [Concomitant]
     Route: 042
     Dates: start: 20060915, end: 20060916
  5. TABINUL INJ. (GLYCOPYRROLATE) [Concomitant]
     Indication: INCREASED VISCOSITY OF BRONCHIAL SECRETION
     Route: 042
     Dates: start: 20060914, end: 20060914
  6. COMBIFLEX PERI INJ. 1100 ML (L-ISOLEUCINE) [Concomitant]
     Indication: PARENTERAL NUTRITION
     Route: 042
     Dates: start: 20060914, end: 20060916
  7. COMBIFLEX PERI INJ. 1100 ML (L-ISOLEUCINE) [Concomitant]
     Route: 042
     Dates: start: 20060922, end: 20060922
  8. CAFSOL INJ. 500 ML (AMINO ACID) [Concomitant]
     Indication: PROPHYLAXIS AGAINST GASTROINTESTINAL ULCER
     Route: 042
     Dates: start: 20060915, end: 20060916
  9. GASTER 20 MG [Concomitant]
     Indication: ANTACID THERAPY
     Route: 042
     Dates: start: 20060917, end: 20060917
  10. GASTER 20 MG [Concomitant]
     Dosage: UNIT DOSE: 20 MG
     Route: 048
     Dates: start: 20060918, end: 20060918
  11. GASTER 20 MG [Concomitant]
     Dosage: TOTAL DAILY DOSE: 40 MG  UNIT DOSE: 20 MG
     Route: 048
     Dates: start: 20060923, end: 20061002
  12. GASTER 20 MG [Concomitant]
     Dosage: UNIT DOSE: 20 MG
     Route: 048
     Dates: start: 20060917, end: 20060917
  13. GASTER 20 MG [Concomitant]
     Dosage: UNIT DOSE: 20 MG
     Route: 042
     Dates: start: 20060915, end: 20060916
  14. GASTER 20 MG [Concomitant]
     Dosage: UNIT DOSE: 20 MG
     Route: 042
     Dates: start: 20060914, end: 20060914
  15. DICKNAL INJ. 2 ML/AMP. [Concomitant]
     Indication: PAIN MANAGEMENT
     Route: 030
     Dates: start: 20060917, end: 20060918
  16. DEXTROSE INJ. 10% 500 ML [Concomitant]
     Indication: FLUID REPLACEMENT
     Route: 042
     Dates: start: 20060919, end: 20060919
  17. MORPHINE HCL INJ. [Concomitant]
     Indication: DRUG USE FOR UNKNOWN INDICATION
     Route: 042
     Dates: start: 20060914, end: 20060914
  18. TARASYN INJ. 30 MG/ML 1 ML (KETOROLAC TROMETHAMINE) [Concomitant]
     Indication: DRUG USE FOR UNKNOWN INDICATION
     Route: 042
     Dates: start: 20060922, end: 20060922
  19. TARASYN INJ. 30 MG/ML 1 ML (KETOROLAC TROMETHAMINE) [Concomitant]
     Route: 042
     Dates: start: 20060914, end: 20060914
  20. DEXAMETHASONE 5 MG/ML INJ. [Concomitant]
     Indication: DRUG USE FOR UNKNOWN INDICATION
     Route: 042
     Dates: start: 20060914, end: 20060914
  21. MACPERAN INJ. 2 ML/10 MG (METOCLOPRAMIDE) [Concomitant]
     Indication: DRUG USE FOR UNKNOWN INDICATION
     Route: 042
     Dates: start: 20060914, end: 20060914
  22. ZOFRAN [Concomitant]
     Indication: DRUG USE FOR UNKNOWN INDICATION
     Route: 042
     Dates: start: 20060914, end: 20060914
  23. ALFENTANIL INJ. 0.05%, 2ML [Concomitant]
     Indication: DRUG USE FOR UNKNOWN INDICATION
     Route: 042
     Dates: start: 20060914, end: 20060914
  24. BOTROPASE INJ. 2 ML/A [Concomitant]
     Indication: DRUG USE FOR UNKNOWN INDICATION
     Dosage: UNIT DOSE: 2 ML
     Route: 042
     Dates: start: 20060914, end: 20060914
  25. ESMERON 50 MG/VIAL [Concomitant]
     Indication: DRUG USE FOR UNKNOWN INDICATION
     Dosage: UNIT DOSE: 50 MG
     Route: 042
     Dates: start: 20060914, end: 20060914
  26. PRIMAL 5 MG [Concomitant]
     Indication: DRUG USE FOR UNKNOWN INDICATION
     Dosage: UNIT DOSE: 5 MG
     Route: 042
     Dates: start: 20060914, end: 20060914
  27. ROBINUL 0.2 MG [Concomitant]
     Indication: DRUG USE FOR UNKNOWN INDICATION
     Dosage: UNIT DOSE: 0.2 MG
     Route: 030
     Dates: start: 20060914, end: 20060914
  28. FRESOFOL INJ. 1% 20 ML/A [Concomitant]
     Indication: PARENTERAL NUTRITION
     Route: 042
     Dates: start: 20060914, end: 20060914
  29. TOMIRON [Concomitant]
     Indication: INFECTION
     Dosage: TOTAL DAILY DOSE: 300 MG  UNIT DOSE: 100 MG
     Route: 048
     Dates: start: 20060923, end: 20061002
  30. ZESPAN (AMMONIUM GLYCYRRHIZINATE) [Concomitant]
     Indication: DYSPEPSIA
     Route: 048
     Dates: start: 20060923, end: 20061002
  31. GLEASE [Concomitant]
     Indication: INFLAMMATION
     Route: 048
     Dates: start: 20060923, end: 20061002
  32. LIVACT [AMINO ACIDS NOS] [Concomitant]
     Indication: DRUG USE FOR UNKNOWN INDICATION
     Route: 048
     Dates: start: 20060926, end: 20061002
  33. YAMATETAN [Concomitant]
     Indication: INFECTION
     Route: 030
     Dates: start: 20060926, end: 20060926
  34. YAMATETAN [Concomitant]
     Dosage: TOTAL DAILY DOSE: 3 G  UNIT DOSE: 1 G
     Route: 042
     Dates: start: 20060921, end: 20060925
  35. ISEPACIN [Concomitant]
     Indication: INFECTION
     Dosage: TOTAL DAILY DOSE: 400 MG  UNIT DOSE: 200 MG
     Route: 030
     Dates: start: 20060921, end: 20060925
  36. ISEPACIN [Concomitant]
     Dosage: TOTAL DAILY DOSE: 200 MG  UNIT DOSE: 200 MG
     Route: 030
     Dates: start: 20060926, end: 20060926
  37. FLAGYL [Concomitant]
     Indication: INFECTION
     Route: 042
     Dates: start: 20060926, end: 20060926
  38. FLAGYL [Concomitant]
     Route: 042
     Dates: start: 20060921, end: 20060925
  39. TYLENOL TAB ER 650 MG (ACETAMINOPHEN) [Concomitant]
     Indication: PAIN MANAGEMENT
     Dosage: TOTAL DAILY DOSE: 650 MG  UNIT DOSE: 650 MG
     Route: 048
     Dates: start: 20060918, end: 20060918
  40. BIOLON 250 CAP [Concomitant]
     Indication: DYSPEPSIA
     Route: 048
     Dates: start: 20060923, end: 20061002
  41. GLAMIN [Concomitant]
     Indication: DRUG USE FOR UNKNOWN INDICATION
     Route: 042
     Dates: start: 20060924, end: 20060925
  42. COTAMIN SYR. 500 ML [Concomitant]
     Indication: INCREASED VISCOSITY OF BRONCHIAL SECRETION
     Dosage: TOTAL DAILY DOSE: 135 ML  UNIT DOSE: 45 ML
     Route: 048
     Dates: start: 20060925, end: 20060925
  43. FENAC INJ. [Concomitant]
     Indication: PAIN MANAGEMENT
     Route: 030
     Dates: start: 20060921, end: 20060921

REACTIONS (4)
  - BLOOD AMYLASE INCREASED [None]
  - LIPASE INCREASED [None]
  - PANCREATITIS ACUTE [None]
  - WOUND ABSCESS [None]
